FAERS Safety Report 10613418 (Version 2)
Quarter: 2014Q4

REPORT INFORMATION
  Report Type: Spontaneous
  Country: PH (occurrence: PH)
  Receive Date: 20141128
  Receipt Date: 20141203
  Transmission Date: 20150529
  Serious: Yes (Death, Other)
  Sender: FDA-Public Use
  Company Number: PH-009507513-1411PHL012784

PATIENT
  Sex: Male

DRUGS (1)
  1. ISENTRESS [Suspect]
     Active Substance: RALTEGRAVIR POTASSIUM
     Dosage: UNK
     Route: 048
     Dates: start: 20141112

REACTIONS (6)
  - Multi-organ failure [Fatal]
  - Meningitis tuberculous [Fatal]
  - HIV infection WHO clinical stage IV [Fatal]
  - Pneumonia [Fatal]
  - Infection [Fatal]
  - Sepsis [Fatal]

NARRATIVE: CASE EVENT DATE: 201411
